FAERS Safety Report 7340284-3 (Version None)
Quarter: 2011Q1

REPORT INFORMATION
  Report Type: 
  Country: None (occurrence: None)
  Receive Date: 20110225
  Receipt Date: 20110208
  Transmission Date: 20110831
  Serious: Yes (Hospitalization)
  Sender: FDA-Public Use
  Company Number: DSA_44971_2011

PATIENT
  Age: 31 Year
  Sex: Female

DRUGS (4)
  1. ALVEDON [Concomitant]
  2. DUROFERON [Concomitant]
  3. MOVICOL /01749801/ [Concomitant]
  4. ENALAPRIL MALEATE [Suspect]
     Indication: ESSENTIAL HYPERTENSION
     Dosage: (5 MG QD ORAL)
     Route: 048
     Dates: start: 20100501, end: 20101001

REACTIONS (4)
  - ABDOMINAL PAIN [None]
  - ACUTE HEPATIC FAILURE [None]
  - NAUSEA [None]
  - ANTINUCLEAR ANTIBODY INCREASED [None]
